FAERS Safety Report 7378786-6 (Version None)
Quarter: 2011Q1

REPORT INFORMATION
  Report Type: 
  Country: None (occurrence: None)
  Receive Date: 20110328
  Receipt Date: 20100107
  Transmission Date: 20110831
  Serious: Yes (Hospitalization, Other)
  Sender: FDA-Public Use
  Company Number: PHHY2010DE14232

PATIENT
  Sex: Female

DRUGS (3)
  1. EXTAVIA [Suspect]
     Indication: MULTIPLE SCLEROSIS
     Dosage: 0.75 UG DAILY
     Route: 058
     Dates: start: 20091216, end: 20100225
  2. EXTAVIA [Suspect]
     Dosage: 0.5 ML
     Route: 058
  3. LEVOTHYROXINE SODIUM [Concomitant]
     Indication: HYPOTHYROIDISM
     Dosage: 125 UG/DAY
     Route: 048

REACTIONS (11)
  - VOMITING [None]
  - HEADACHE [None]
  - HYPERSENSITIVITY [None]
  - INSOMNIA [None]
  - ANXIETY [None]
  - NAUSEA [None]
  - DIZZINESS [None]
  - INJECTION SITE REACTION [None]
  - INFLUENZA [None]
  - BODY TEMPERATURE INCREASED [None]
  - CARDIOVASCULAR DISORDER [None]
